FAERS Safety Report 13367255 (Version 3)
Quarter: 2017Q2

REPORT INFORMATION
  Report Type: Spontaneous
  Country: US (occurrence: US)
  Receive Date: 20170324
  Receipt Date: 20170511
  Transmission Date: 20170830
  Serious: Yes (Other)
  Sender: FDA-Public Use
  Company Number: US-TEVA-751932USA

PATIENT
  Age: 79 Year
  Sex: Female

DRUGS (3)
  1. PREVACID [Concomitant]
     Active Substance: LANSOPRAZOLE
  2. HYDROXYCARBAMIDE [Suspect]
     Active Substance: HYDROXYUREA
     Indication: THROMBOCYTOSIS
     Dates: start: 2003
  3. LEVOTHYROXINE. [Concomitant]
     Active Substance: LEVOTHYROXINE

REACTIONS (8)
  - Epistaxis [Unknown]
  - Barrett^s oesophagus [Unknown]
  - Oesophageal ulcer [Unknown]
  - Heart valve replacement [Unknown]
  - Quality of life decreased [Unknown]
  - Gastrooesophageal reflux disease [Unknown]
  - Alopecia [Unknown]
  - Neoplasm skin [Unknown]

NARRATIVE: CASE EVENT DATE: 2009
